FAERS Safety Report 8070773-8 (Version None)
Quarter: 2012Q1

REPORT INFORMATION
  Report Type: 
  Country: None (occurrence: None)
  Receive Date: 20120125
  Receipt Date: 20120117
  Transmission Date: 20120608
  Serious: Yes (Disabling)
  Sender: FDA-Public Use
  Company Number: FR-ABBOTT-12P-056-0889063-00

PATIENT
  Sex: Female
  Weight: 55 kg

DRUGS (3)
  1. HUMIRA [Suspect]
     Indication: CROHN'S DISEASE
     Route: 058
     Dates: start: 20111115, end: 20120110
  2. PENTASA [Suspect]
     Indication: CROHN'S DISEASE
     Route: 048
     Dates: start: 20111115, end: 20120110
  3. IMURAN [Suspect]
     Indication: CROHN'S DISEASE
     Dosage: 2 TABLETS DAILY
     Dates: start: 20111115, end: 20120110

REACTIONS (2)
  - ARTHRALGIA [None]
  - DYSAESTHESIA [None]
